FAERS Safety Report 11496240 (Version 3)
Quarter: 2015Q4

REPORT INFORMATION
  Report Type: Spontaneous
  Country: JP (occurrence: JP)
  Receive Date: 20150911
  Receipt Date: 20151022
  Transmission Date: 20160304
  Serious: Yes (Other)
  Sender: FDA-Public Use
  Company Number: JP-ASTRAZENECA-2015SE87050

PATIENT
  Age: 42 Year
  Sex: Female

DRUGS (3)
  1. REBAMIPIDE [Suspect]
     Active Substance: REBAMIPIDE
     Dosage: DOSE UNKNOWN
     Route: 048
     Dates: start: 20150902, end: 20150903
  2. NEXIUM [Suspect]
     Active Substance: ESOMEPRAZOLE MAGNESIUM
     Dosage: DOSE UNKNOWN
     Route: 048
     Dates: start: 20150903, end: 20150903
  3. GASMOTIN [Suspect]
     Active Substance: MOSAPRIDE CITRATE
     Dosage: DOSE UNKNOWN
     Route: 048
     Dates: start: 20150902, end: 20150903

REACTIONS (3)
  - Ocular hyperaemia [Recovering/Resolving]
  - Erythema [Recovering/Resolving]
  - Dyspnoea [Recovering/Resolving]

NARRATIVE: CASE EVENT DATE: 20150903
